FAERS Safety Report 9258860 (Version 2)
Quarter: 2013Q2

REPORT INFORMATION
  Report Type: Spontaneous
  Country: US (occurrence: US)
  Receive Date: 20130426
  Receipt Date: 20130607
  Transmission Date: 20140414
  Serious: No
  Sender: FDA-Public Use
  Company Number: US-PFIZER INC-2013130427

PATIENT
  Age: 67 Year
  Sex: Female
  Weight: 89.8 kg

DRUGS (4)
  1. CHANTIX [Suspect]
     Indication: SMOKING CESSATION THERAPY
     Dosage: 0.5 MG, 1X/DAY
     Route: 048
  2. CLONIDINE [Concomitant]
     Dosage: UNK
  3. LISINOPRIL [Concomitant]
     Dosage: UNK
  4. NORVASC [Concomitant]
     Dosage: UNK

REACTIONS (2)
  - Abnormal dreams [Recovered/Resolved]
  - Weight decreased [Not Recovered/Not Resolved]
